FAERS Safety Report 17999594 (Version 2)
Quarter: 2020Q3

REPORT INFORMATION
  Report Type: Spontaneous
  Country: DE (occurrence: DE)
  Receive Date: 20200709
  Receipt Date: 20200717
  Transmission Date: 20201103
  Serious: Yes (Hospitalization)
  Sender: FDA-Public Use
  Company Number: DE-MYLANLABS-2020M1062492

PATIENT
  Age: 25 Month
  Sex: Male
  Weight: 13 kg

DRUGS (1)
  1. LEVETIRACETAM. [Suspect]
     Active Substance: LEVETIRACETAM
     Indication: PRODUCT USED FOR UNKNOWN INDICATION
     Dosage: 500 MILLIGRAM (DOSIS UNBEKANNT)
     Route: 048
     Dates: start: 20200201

REACTIONS (4)
  - Product storage error [Recovered/Resolved]
  - Accidental exposure to product by child [Recovered/Resolved]
  - Product administration error [Recovered/Resolved]
  - No adverse event [Recovered/Resolved]

NARRATIVE: CASE EVENT DATE: 20200201
